FAERS Safety Report 22537371 (Version 2)
Quarter: 2023Q2

REPORT INFORMATION
  Report Type: Report from Study
  Country: US (occurrence: US)
  Receive Date: 20230608
  Receipt Date: 20230620
  Transmission Date: 20230721
  Serious: Yes (Hospitalization)
  Sender: FDA-Public Use
  Company Number: US-PFIZER INC-US-GBT-016343

PATIENT
  Age: 7 Year
  Sex: Male
  Weight: 23 kg

DRUGS (3)
  1. OXBRYTA [Suspect]
     Active Substance: VOXELOTOR
     Indication: Sickle cell disease
     Dosage: 900 MG, 1X/DAY
     Route: 048
     Dates: start: 20220902, end: 202209
  2. OXBRYTA [Suspect]
     Active Substance: VOXELOTOR
     Dosage: 900 MG, 1X/DAY
     Route: 048
     Dates: start: 202209, end: 202211
  3. OXBRYTA [Suspect]
     Active Substance: VOXELOTOR
     Dosage: 900 MG, 1X/DAY
     Route: 048
     Dates: start: 202211

REACTIONS (12)
  - Dyspnoea [Recovering/Resolving]
  - Oxygen saturation decreased [Recovering/Resolving]
  - Headache [Recovering/Resolving]
  - Abdominal pain [Recovered/Resolved]
  - Sickle cell anaemia with crisis [Unknown]
  - Tonsillectomy [Unknown]
  - Pain [Recovering/Resolving]
  - Abdominal pain upper [Unknown]
  - Retching [Unknown]
  - Nausea [Not Recovered/Not Resolved]
  - Wrong technique in product usage process [Unknown]
  - Product use complaint [Unknown]

NARRATIVE: CASE EVENT DATE: 20220101
